FAERS Safety Report 20386012 (Version 4)
Quarter: 2023Q2

REPORT INFORMATION
  Report Type: Report from Study
  Country: US (occurrence: US)
  Receive Date: 20220127
  Receipt Date: 20230428
  Transmission Date: 20230721
  Serious: Yes (Death)
  Sender: FDA-Public Use
  Company Number: US-TEVA-2022-US-2001024

PATIENT
  Age: 56 Year

DRUGS (3)
  1. ETOPOSIDE [Suspect]
     Active Substance: ETOPOSIDE
     Indication: Acute lymphocytic leukaemia
     Dosage: TREATED ON AN INTENSIFIED HIGH-RISK ARM AND RECEIVED CCE REGIMEN AT TWO POINTS DURING TREATMENT: ...
     Route: 065
  2. CLOFARABINE [Suspect]
     Active Substance: CLOFARABINE
     Indication: Acute lymphocytic leukaemia
     Dosage: TREATED ON AN INTENSIFIED HIGH-RISK ARM AND RECEIVED CCE REGIMEN AT TWO POINTS DURING TREATMENT: ...
     Route: 065
  3. CYCLOPHOSPHAMIDE [Suspect]
     Active Substance: CYCLOPHOSPHAMIDE
     Indication: Acute lymphocytic leukaemia
     Dosage: TREATED ON AN INTENSIFIED HIGH-RISK ARM AND RECEIVED CCE REGIMEN AT TWO POINTS DURING TREATMENT: ...
     Route: 065

REACTIONS (2)
  - Bacterial infection [Fatal]
  - Soft tissue infection [Fatal]
